FAERS Safety Report 7118561-0 (Version None)
Quarter: 2010Q4

REPORT INFORMATION
  Report Type: 
  Country: None (occurrence: None)
  Receive Date: 20101123
  Receipt Date: 20031222
  Transmission Date: 20110411
  Serious: Yes (Other)
  Sender: FDA-Public Use
  Company Number: PHHY2003MX02463

PATIENT
  Age: 68 Year
  Sex: Female

DRUGS (1)
  1. FORADIL [Suspect]
     Dosage: 24 MCG/DAY
     Dates: start: 20030523

REACTIONS (1)
  - CARDIAC ARREST [None]
